FAERS Safety Report 23200394 (Version 2)
Quarter: 2023Q4

REPORT INFORMATION
  Report Type: Spontaneous
  Country: JP (occurrence: JP)
  Receive Date: 20231118
  Receipt Date: 20231225
  Transmission Date: 20240110
  Serious: Yes (Other)
  Sender: FDA-Public Use
  Company Number: JP-CHUGAI-2023040363

PATIENT
  Age: 6 Decade
  Sex: Male
  Weight: 56 kg

DRUGS (6)
  1. HEMLIBRA [Suspect]
     Active Substance: EMICIZUMAB-KXWH
     Indication: Factor VIII deficiency
     Route: 058
     Dates: start: 20190109
  2. URSO [Concomitant]
     Active Substance: URSODIOL
     Dosage: UNK
  3. ELOCTATE [Concomitant]
     Active Substance: EFMOROCTOCOG ALFA
     Dosage: UNK, SINGLE
  4. DESCOVY [Concomitant]
     Active Substance: EMTRICITABINE\TENOFOVIR ALAFENAMIDE FUMARATE
     Dosage: UNK
  5. ISENTRESS [Concomitant]
     Active Substance: RALTEGRAVIR POTASSIUM
     Dosage: UNK
  6. ADYNOVATE [Concomitant]
     Active Substance: ANTIHEMOPHILIC FACTOR, HUMAN RECOMBINANT
     Dosage: UNK, TIW

REACTIONS (2)
  - Portal vein thrombosis [Not Recovered/Not Resolved]
  - Hepatic vein thrombosis [Not Recovered/Not Resolved]

NARRATIVE: CASE EVENT DATE: 20231108
